FAERS Safety Report 9431801 (Version 1)
Quarter: 2013Q3

REPORT INFORMATION
  Report Type: Spontaneous
  Country: US (occurrence: US)
  Receive Date: 20130731
  Receipt Date: 20130731
  Transmission Date: 20140515
  Serious: Yes (Other)
  Sender: FDA-Public Use
  Company Number: US-SHIRE-ALL1-2013-05036

PATIENT
  Sex: Male

DRUGS (1)
  1. VYVANSE [Suspect]
     Indication: ATTENTION DEFICIT/HYPERACTIVITY DISORDER
     Dosage: UNK (40 OR 50 MG), 1X/DAY:QD
     Route: 048
     Dates: end: 2013

REACTIONS (3)
  - Bipolar disorder [Not Recovered/Not Resolved]
  - Hallucination, visual [Unknown]
  - Hallucination, auditory [Unknown]
